FAERS Safety Report 4462785-8 (Version None)
Quarter: 2004Q3

REPORT INFORMATION
  Report Type: 
  Country: None (occurrence: None)
  Receive Date: 20040927
  Receipt Date: 20040913
  Transmission Date: 20050211
  Serious: Yes (Disabling)
  Sender: FDA-Public Use
  Company Number: 2004004722

PATIENT
  Age: 50 Year
  Sex: Male

DRUGS (6)
  1. LIPITOR [Suspect]
     Indication: BLOOD CHOLESTEROL INCREASED
     Dosage: 10 MG ( 1 IN 1 D), ORAL
     Route: 048
     Dates: start: 20010625, end: 20010825
  2. LIPITOR [Suspect]
     Indication: CORONARY ARTERY DISEASE
     Dosage: 10 MG ( 1 IN 1 D), ORAL
     Route: 048
     Dates: start: 20010625, end: 20010825
  3. CLOPIDOGREL BISULFATE [Concomitant]
  4. RAMIPRIL [Concomitant]
  5. ASPIRIN [Concomitant]
  6. BUPROPION HYDROCHLORIDE [Concomitant]

REACTIONS (10)
  - ASTHENIA [None]
  - BLOOD CREATINE PHOSPHOKINASE INCREASED [None]
  - CONFUSIONAL STATE [None]
  - COORDINATION ABNORMAL [None]
  - FATIGUE [None]
  - FIBROMYALGIA [None]
  - IMPAIRED WORK ABILITY [None]
  - MYALGIA [None]
  - MYOSITIS [None]
  - NEUROMYOPATHY [None]
